FAERS Safety Report 16793032 (Version 1)
Quarter: 2019Q3

REPORT INFORMATION
  Report Type: Report from Study
  Country: None (occurrence: US)
  Receive Date: 20190911
  Receipt Date: 20190911
  Transmission Date: 20191005
  Serious: Yes (Other)
  Sender: FDA-Public Use
  Company Number: US-ABBVIE-19K-163-2914101-00

PATIENT
  Age: 51 Year
  Sex: Female

DRUGS (3)
  1. HUMIRA [Suspect]
     Active Substance: ADALIMUMAB
     Dosage: CITRATE FREE
     Route: 058
     Dates: start: 201908
  2. HUMIRA [Suspect]
     Active Substance: ADALIMUMAB
     Dosage: CITRATE FREE
     Route: 058
     Dates: start: 2014, end: 20190702
  3. HUMIRA [Suspect]
     Active Substance: ADALIMUMAB
     Indication: CROHN^S DISEASE
     Dosage: CITRATE FREE
     Route: 058

REACTIONS (1)
  - Rotator cuff syndrome [Unknown]

NARRATIVE: CASE EVENT DATE: 20190802
